FAERS Safety Report 10147456 (Version 1)
Quarter: 2014Q2

REPORT INFORMATION
  Report Type: Spontaneous
  Country: CA (occurrence: CA)
  Receive Date: 20140501
  Receipt Date: 20140501
  Transmission Date: 20141212
  Serious: Yes (Hospitalization)
  Sender: FDA-Public Use
  Company Number: CA-009507513-1404CAN014782

PATIENT
  Age: 59 Year
  Sex: Male

DRUGS (3)
  1. INVANZ [Suspect]
     Route: 065
  2. EXTRANEAL [Suspect]
     Route: 033
  3. DIANEAL [Suspect]
     Dosage: 2.5 % DEXTROSE AND 2.5MEQ/L CALCIUM
     Route: 033

REACTIONS (7)
  - Adverse drug reaction [Recovered/Resolved]
  - Limb injury [Recovered/Resolved]
  - Pain in extremity [Recovered/Resolved]
  - Sluggishness [Recovered/Resolved]
  - Toxicity to various agents [Recovered/Resolved]
  - Hallucination [Recovered/Resolved]
  - Fatigue [Recovered/Resolved]
